FAERS Safety Report 9543432 (Version 1)
Quarter: 2013Q2

REPORT INFORMATION
  Report Type: Spontaneous
  Country: US (occurrence: None)
  Receive Date: 20130524
  Receipt Date: 20130524
  Transmission Date: 20140414
  Serious: No
  Sender: FDA-Public Use
  Company Number: PHEH2013US004027

PATIENT
  Age: 21 Year
  Sex: Male
  Weight: 54 kg

DRUGS (1)
  1. GILENYA [Suspect]
     Route: 048
     Dates: start: 20130208, end: 20130213

REACTIONS (2)
  - Dysarthria [None]
  - Gait disturbance [None]
